FAERS Safety Report 4548509-4 (Version None)
Quarter: 2005Q1

REPORT INFORMATION
  Report Type: 
  Country: None (occurrence: None)
  Receive Date: 20050110
  Receipt Date: 20050104
  Transmission Date: 20050727
  Serious: Yes (Other)
  Sender: FDA-Public Use
  Company Number: GB-GLAXOSMITHKLINE-B0363327A

PATIENT
  Age: 30 Year
  Sex: Female

DRUGS (3)
  1. AVANDIA [Suspect]
     Route: 048
  2. GLICLAZIDE [Suspect]
     Route: 048
  3. FOLIC ACID [Concomitant]
     Indication: PREGNANCY
     Dosage: 5MG PER DAY
     Route: 048

REACTIONS (1)
  - ABORTION [None]
